FAERS Safety Report 10685943 (Version 1)
Quarter: 2014Q4

REPORT INFORMATION
  Report Type: Spontaneous
  Country: US (occurrence: US)
  Receive Date: 20141231
  Receipt Date: 20141231
  Transmission Date: 20150529
  Serious: No
  Sender: FDA-Public Use
  Company Number: US-PFIZER INC-2014361653

PATIENT
  Sex: Female

DRUGS (2)
  1. LYRICA [Suspect]
     Active Substance: PREGABALIN
     Indication: FIBROMYALGIA
     Dosage: 1 DF, 2X/DAY ONE IN MORNING AND ONE IN NIGHT
  2. LYRICA [Suspect]
     Active Substance: PREGABALIN
     Indication: HEAD DISCOMFORT
     Dosage: 2 DF, 2X/DAY TWO IN MORNING AND TWO IN NIGHT

REACTIONS (2)
  - Intentional product use issue [Unknown]
  - Weight increased [Unknown]
